FAERS Safety Report 11746183 (Version 2)
Quarter: 2015Q4

REPORT INFORMATION
  Report Type: Spontaneous
  Country: GB (occurrence: GB)
  Receive Date: 20151117
  Receipt Date: 20151118
  Transmission Date: 20160304
  Serious: Yes (Hospitalization)
  Sender: FDA-Public Use
  Company Number: GB-JNJFOC-20151105824

PATIENT
  Age: 3 Year
  Sex: Male

DRUGS (1)
  1. CALPOL [Suspect]
     Active Substance: ACETAMINOPHEN
     Indication: ACCIDENTAL EXPOSURE TO PRODUCT
     Route: 048
     Dates: start: 20151103, end: 20151103

REACTIONS (4)
  - Lethargy [Not Recovered/Not Resolved]
  - Accidental exposure to product by child [Not Recovered/Not Resolved]
  - Abnormal behaviour [Not Recovered/Not Resolved]
  - Failure of child resistant mechanism for pharmaceutical product [Unknown]

NARRATIVE: CASE EVENT DATE: 20151103
